FAERS Safety Report 5021104-9 (Version None)
Quarter: 2006Q2

REPORT INFORMATION
  Report Type: 
  Country: None (occurrence: None)
  Receive Date: 20060608
  Receipt Date: 20060605
  Transmission Date: 20061013
  Serious: Yes (Hospitalization)
  Sender: FDA-Public Use
  Company Number: US-MERCK-0606USA00726

PATIENT
  Age: 68 Year
  Sex: Male

DRUGS (6)
  1. FOSAMAX [Suspect]
     Indication: OSTEOPOROSIS
     Route: 048
     Dates: end: 20060228
  2. AMIODARONE [Concomitant]
     Route: 065
  3. WARFARIN [Concomitant]
     Route: 065
  4. PAROXETINE [Concomitant]
     Route: 065
  5. AMBIEN [Concomitant]
     Route: 065
  6. GASTROINTESTINAL PREPARATIONS (UNSPECIFIED) [Concomitant]
     Route: 065

REACTIONS (2)
  - ADVERSE DRUG REACTION [None]
  - NEOPLASM MALIGNANT [None]
